FAERS Safety Report 5705856-8 (Version None)
Quarter: 2008Q2

REPORT INFORMATION
  Report Type: 
  Country: None (occurrence: None)
  Receive Date: 20080414
  Receipt Date: 20080414
  Transmission Date: 20081010
  Serious: No
  Sender: FDA-Public Use
  Company Number: None

PATIENT
  Age: 36 Year
  Sex: Female

DRUGS (2)
  1. METROGEL-VAGINAL [Suspect]
     Dosage: GEL
  2. METRONIDAZOLE [Suspect]
     Dosage: CREAM

REACTIONS (6)
  - CONDITION AGGRAVATED [None]
  - DRUG DISPENSING ERROR [None]
  - FUNGAL INFECTION [None]
  - INCORRECT ROUTE OF DRUG ADMINISTRATION [None]
  - MEDICATION ERROR [None]
  - WRONG DRUG ADMINISTERED [None]
